FAERS Safety Report 9782635 (Version 1)
Quarter: 2013Q4

REPORT INFORMATION
  Report Type: Report from Study
  Country: BR (occurrence: BR)
  Receive Date: 20131226
  Receipt Date: 20131226
  Transmission Date: 20140711
  Serious: Yes (Death, Other)
  Sender: FDA-Public Use
  Company Number: PHHY2013BR151836

PATIENT
  Age: 59 Year
  Sex: Female
  Weight: 78 kg

DRUGS (8)
  1. DIOVAN [Suspect]
     Indication: CARDIAC DISORDER
     Dosage: UNK
     Route: 048
     Dates: start: 2005, end: 2008
  2. DIOVAN AMLO FIX [Suspect]
     Indication: CARDIAC DISORDER
     Dosage: 1 DF (160 MG VALS AND 5 MG AMLO), QD
     Route: 048
     Dates: start: 2008, end: 20131205
  3. GLICAZIDA [Concomitant]
     Dosage: 30 MG, UNK
  4. METFORMIN [Concomitant]
     Dosage: 850 MG, UNK
  5. SELOKEN [Concomitant]
     Dosage: 100 MG, UNK
  6. VASILIP [Concomitant]
     Dosage: 20 MG, UNK
  7. ACETYLSALICYLIC ACID [Concomitant]
     Dosage: 100 MG, UNK
  8. CLOPIDOGREL [Concomitant]
     Dosage: 75 G, UNK

REACTIONS (10)
  - Diabetes mellitus [Fatal]
  - Acute myocardial infarction [Fatal]
  - Arteriosclerosis coronary artery [Fatal]
  - Hypertension [Fatal]
  - Cardiogenic shock [Fatal]
  - Arteriosclerosis [Fatal]
  - Infarction [Unknown]
  - Coma [Unknown]
  - Cardiac disorder [Unknown]
  - Pyrexia [Unknown]
